FAERS Safety Report 12515154 (Version 4)
Quarter: 2016Q3

REPORT INFORMATION
  Report Type: Spontaneous
  Country: US (occurrence: US)
  Receive Date: 20160630
  Receipt Date: 20160809
  Transmission Date: 20161109
  Serious: Yes (Death, Hospitalization)
  Sender: FDA-Public Use
  Company Number: US-JNJFOC-20160602384

PATIENT
  Age: 73 Year
  Sex: Male

DRUGS (1)
  1. XARELTO [Suspect]
     Active Substance: RIVAROXABAN
     Indication: PULMONARY EMBOLISM
     Route: 048
     Dates: start: 20160107, end: 20160120

REACTIONS (5)
  - Gastrointestinal haemorrhage [Fatal]
  - Hepatocellular carcinoma [Fatal]
  - Chronic obstructive pulmonary disease [Fatal]
  - Pulmonary embolism [Fatal]
  - Asthma [Fatal]

NARRATIVE: CASE EVENT DATE: 20160110
